FAERS Safety Report 7653902-7 (Version None)
Quarter: 2011Q3

REPORT INFORMATION
  Report Type: 
  Country: None (occurrence: None)
  Receive Date: 20110803
  Receipt Date: 20110726
  Transmission Date: 20111222
  Serious: Yes (Other)
  Sender: FDA-Public Use
  Company Number: PHHY2011BR67624

PATIENT
  Age: 65 Year
  Sex: Female

DRUGS (2)
  1. BUFFERIN [Suspect]
     Dosage: 81 MG, UNK
     Dates: start: 20110201
  2. SOMALGIN [Concomitant]

REACTIONS (1)
  - EPISTAXIS [None]
